FAERS Safety Report 7884055-8 (Version None)
Quarter: 2011Q4

REPORT INFORMATION
  Report Type: 
  Country: None (occurrence: None)
  Receive Date: 20111102
  Receipt Date: 20111028
  Transmission Date: 20120403
  Serious: Yes (Other)
  Sender: FDA-Public Use
  Company Number: PHHY2011JP92809

PATIENT
  Age: 48 Year
  Sex: Female

DRUGS (3)
  1. ZOLEDRONIC ACID [Suspect]
     Route: 042
     Dates: start: 20060901
  2. TAMOXIFEN CITRATE [Concomitant]
  3. HORMONES [Concomitant]

REACTIONS (3)
  - IMPAIRED HEALING [None]
  - SWELLING [None]
  - OSTEONECROSIS OF JAW [None]
